FAERS Safety Report 19322852 (Version 1)
Quarter: 2021Q2

REPORT INFORMATION
  Report Type: Spontaneous
  Country: GB (occurrence: GB)
  Receive Date: 20210528
  Receipt Date: 20210528
  Transmission Date: 20210717
  Serious: Yes (Other)
  Sender: FDA-Public Use
  Company Number: GB-ORION CORPORATION ORION PHARMA-21_00014427

PATIENT
  Age: 35 Year
  Sex: Male

DRUGS (5)
  1. METHOTREXATE (TRADE NAME UNKNOWN) [Suspect]
     Active Substance: METHOTREXATE
     Indication: PRODUCT USED FOR UNKNOWN INDICATION
     Route: 048
  2. METHOTREXATE (TRADE NAME UNKNOWN) [Suspect]
     Active Substance: METHOTREXATE
     Route: 058
  3. DUPILUMAB [Concomitant]
     Active Substance: DUPILUMAB
     Route: 065
  4. PREDNISOLONE. [Concomitant]
     Active Substance: PREDNISOLONE
     Route: 065
  5. ACITRETIN. [Concomitant]
     Active Substance: ACITRETIN
     Route: 065

REACTIONS (8)
  - Erythema [Unknown]
  - Infection [Unknown]
  - Inflammation [Unknown]
  - Blepharitis [Unknown]
  - Drug ineffective [Unknown]
  - Cataract [Unknown]
  - Squamous cell carcinoma [Unknown]
  - Insomnia [Unknown]
